FAERS Safety Report 4876113-7 (Version None)
Quarter: 2006Q1

REPORT INFORMATION
  Report Type: 
  Country: None (occurrence: None)
  Receive Date: 20060106
  Receipt Date: 20060106
  Transmission Date: 20060701
  Serious: Yes (Other)
  Sender: FDA-Public Use
  Company Number: None

PATIENT
  Age: 16 Year
  Sex: Male

DRUGS (1)
  1. STRATTERA [Suspect]
     Indication: ATTENTION DEFICIT/HYPERACTIVITY DISORDER
     Dosage: 25 MG AT BEDTIME PO
     Route: 048

REACTIONS (6)
  - ANXIETY [None]
  - DYSKINESIA [None]
  - GAIT DISTURBANCE [None]
  - HYPERTENSION [None]
  - RESTLESSNESS [None]
  - TREMOR [None]
